FAERS Safety Report 4331647-9 (Version None)
Quarter: 2004Q2

REPORT INFORMATION
  Report Type: 
  Country: None (occurrence: None)
  Receive Date: 20040401
  Receipt Date: 20040401
  Transmission Date: 20050107
  Serious: Yes (Hospitalization)
  Sender: FDA-Public Use
  Company Number: None

PATIENT
  Age: 64 Year
  Sex: Female

DRUGS (11)
  1. TAXOL [Suspect]
     Indication: BREAST CANCER
     Dosage: 80 MG /.M2 IV (150 MG)
     Route: 042
     Dates: start: 20040105
  2. TAXOL [Suspect]
     Indication: BREAST CANCER
     Dosage: 80 MG /.M2 IV (150 MG)
     Route: 042
     Dates: start: 20040114
  3. TAXOL [Suspect]
     Indication: BREAST CANCER
     Dosage: 80 MG /.M2 IV (150 MG)
     Route: 042
     Dates: start: 20040129
  4. TAXOL [Suspect]
     Indication: BREAST CANCER
     Dosage: 80 MG /.M2 IV (150 MG)
     Route: 042
     Dates: start: 20040204
  5. TAXOL [Suspect]
     Indication: BREAST CANCER
     Dosage: 80 MG /.M2 IV (150 MG)
     Route: 042
     Dates: start: 20040211
  6. TAXOL [Suspect]
     Indication: BREAST CANCER
     Dosage: 80 MG /.M2 IV (150 MG)
     Route: 042
     Dates: start: 20040219
  7. TAXOL [Suspect]
     Indication: BREAST CANCER
     Dosage: 80 MG /.M2 IV (150 MG)
     Route: 042
     Dates: start: 20040225
  8. TAXOL [Suspect]
     Indication: BREAST CANCER
     Dosage: 80 MG /.M2 IV (150 MG)
     Route: 042
     Dates: start: 20040303
  9. CARBOPLATIN [Suspect]
     Indication: BREAST CANCER
     Dosage: AUC 6 IV (558 MG)
     Route: 042
     Dates: start: 20040105
  10. CARBOPLATIN [Suspect]
     Indication: BREAST CANCER
     Dosage: AUC 6 IV (558 MG)
     Route: 042
     Dates: start: 20040204
  11. CARBOPLATIN [Suspect]
     Indication: BREAST CANCER
     Dosage: AUC 6 IV (558 MG)
     Route: 042
     Dates: start: 20040303

REACTIONS (3)
  - NEUTROPHIL COUNT ABNORMAL [None]
  - URINARY TRACT INFECTION [None]
  - VIRAL INFECTION [None]
